FAERS Safety Report 10220086 (Version 1)
Quarter: 2014Q2

REPORT INFORMATION
  Report Type: Spontaneous
  Country: DE (occurrence: DE)
  Receive Date: 20140605
  Receipt Date: 20140605
  Transmission Date: 20141212
  Serious: Yes (Death)
  Sender: FDA-Public Use
  Company Number: DE-LUNDBECK-DKLU1100720

PATIENT
  Age: 40 Year
  Sex: Female

DRUGS (15)
  1. CLOBAZAM [Suspect]
     Indication: SUICIDE ATTEMPT
  2. CIPRAMIL [Suspect]
     Indication: SUICIDE ATTEMPT
     Dosage: ONCE
  3. LEVETIRACETAM [Suspect]
     Indication: SUICIDE ATTEMPT
  4. LEVETIRACETAM [Suspect]
     Dosage: ONCE
  5. LAMOTRIGINE [Suspect]
     Indication: SUICIDE ATTEMPT
  6. LAMOTRIGINE [Suspect]
     Dosage: ONCE
  7. LAMOTRIGINE [Suspect]
  8. LAMOTRIGINE [Suspect]
  9. LAMOTRIGINE [Suspect]
     Dosage: ONCE
  10. LACOSAMIDE [Suspect]
     Indication: SUICIDE ATTEMPT
  11. LACOSAMIDE [Suspect]
     Dosage: ONCE
  12. CLONAZEPAM [Concomitant]
     Indication: PRODUCT USED FOR UNKNOWN INDICATION
  13. DIAMOX [Concomitant]
     Indication: PRODUCT USED FOR UNKNOWN INDICATION
  14. VALDOXAN [Concomitant]
     Indication: PRODUCT USED FOR UNKNOWN INDICATION
  15. LORAZEPAM [Concomitant]
     Indication: PRODUCT USED FOR UNKNOWN INDICATION

REACTIONS (2)
  - Completed suicide [Fatal]
  - Toxicity to various agents [Fatal]
